FAERS Safety Report 18207305 (Version 1)
Quarter: 2020Q3

REPORT INFORMATION
  Report Type: Spontaneous
  Country: BR (occurrence: BR)
  Receive Date: 20200828
  Receipt Date: 20200828
  Transmission Date: 20201103
  Serious: Yes (Other)
  Sender: FDA-Public Use
  Company Number: BR-009507513-2008BRA012566

PATIENT
  Sex: Female

DRUGS (1)
  1. NITES [Suspect]
     Active Substance: MOMETASONE FUROATE
     Dosage: UNK
     Route: 045

REACTIONS (4)
  - Eye irritation [Unknown]
  - Nasal discomfort [Unknown]
  - Dizziness [Unknown]
  - Vein rupture [Unknown]
